FAERS Safety Report 6425424-2 (Version None)
Quarter: 2009Q4

REPORT INFORMATION
  Report Type: 
  Country: None (occurrence: None)
  Receive Date: 20091103
  Receipt Date: 20091022
  Transmission Date: 20100525
  Serious: Yes (Hospitalization, Other)
  Sender: FDA-Public Use
  Company Number: DE-ELI_LILLY_AND_COMPANY-DE200910005725

PATIENT
  Sex: Male

DRUGS (5)
  1. GEMCITABINE HCL [Suspect]
     Indication: PANCREATIC CARCINOMA NON-RESECTABLE
     Dosage: 100 MG/M2, WEEKLY (1/W)
     Route: 042
     Dates: start: 20071019
  2. OTHER PHARMA COMPANY INV DRUG [Suspect]
     Indication: PANCREATIC CARCINOMA NON-RESECTABLE
     Dosage: 200 MG CAPSULES, 2/D
     Route: 048
     Dates: start: 20071019
  3. FURESIS [Concomitant]
     Route: 048
     Dates: start: 20080502, end: 20080521
  4. PROTEINS NOS [Concomitant]
     Route: 042
     Dates: start: 20080521
  5. DISALUNIL [Concomitant]
     Dosage: UNK, UNK
     Route: 048
     Dates: start: 20080320, end: 20080521

REACTIONS (4)
  - CARDIOPULMONARY FAILURE [None]
  - DEVICE RELATED SEPSIS [None]
  - HYPOALBUMINAEMIA [None]
  - RENAL IMPAIRMENT [None]
